FAERS Safety Report 26121915 (Version 1)
Quarter: 2025Q4

REPORT INFORMATION
  Report Type: Report from Study
  Country: US (occurrence: US)
  Receive Date: 20251204
  Receipt Date: 20251204
  Transmission Date: 20260118
  Serious: No
  Sender: SOLENO THERAPEUTICS
  Company Number: US-SOLENO THERAPEUTICS, INC.-SOL2025000699

PATIENT
  Age: 28 Year
  Sex: Male
  Weight: 155 kg

DRUGS (17)
  1. DIAZOXIDE CHOLINE [Suspect]
     Active Substance: DIAZOXIDE CHOLINE
     Indication: Prader-Willi syndrome
     Dosage: UNK
     Route: 048
     Dates: start: 20250911, end: 2025
  2. DIAZOXIDE CHOLINE [Suspect]
     Active Substance: DIAZOXIDE CHOLINE
     Dosage: 300 MILLIGRAM, QD
     Route: 048
     Dates: start: 2025
  3. DIAZOXIDE CHOLINE [Suspect]
     Active Substance: DIAZOXIDE CHOLINE
     Dosage: 1 TABLET BY MOUTH ONCE DAILY FOR HYPERPHAGIA IN PWS
     Route: 048
     Dates: start: 2025, end: 20251118
  4. TESTOSTERONE [Concomitant]
     Active Substance: TESTOSTERONE
     Indication: Product used for unknown indication
     Dosage: UNK (ONCE MONTHLY)
     Route: 065
  5. TOPIRAMATE [Concomitant]
     Active Substance: TOPIRAMATE
     Indication: Product used for unknown indication
     Dosage: UNK, QD
     Route: 065
  6. FLUOXETINE [Concomitant]
     Active Substance: FLUOXETINE HYDROCHLORIDE
     Indication: Product used for unknown indication
     Dosage: UNK, QD
     Route: 065
  7. WEGOVY [Concomitant]
     Active Substance: SEMAGLUTIDE
     Indication: Product used for unknown indication
     Dosage: UNK, QD
     Route: 065
  8. CARBAMAZEPINE [Concomitant]
     Active Substance: CARBAMAZEPINE
     Indication: Product used for unknown indication
     Dosage: UNK, QD
     Route: 065
  9. INSULIN NOS [Concomitant]
     Active Substance: INSULIN NOS
     Indication: Product used for unknown indication
     Dosage: UNK AS DIRECTED
     Route: 065
  10. Lipidene [Concomitant]
     Indication: Product used for unknown indication
     Dosage: UNK, QD
     Route: 065
  11. VITAMIN D [Concomitant]
     Active Substance: VITAMIN D NOS
     Indication: Product used for unknown indication
     Dosage: UNK, QD
     Route: 065
  12. RISPERIDONE [Concomitant]
     Active Substance: RISPERIDONE
     Indication: Product used for unknown indication
     Dosage: UNK, QD
     Route: 065
  13. COLACE [Concomitant]
     Active Substance: DOCUSATE SODIUM
     Indication: Product used for unknown indication
     Dosage: UNK, BID
     Route: 065
  14. MIRALAX [Concomitant]
     Active Substance: POLYETHYLENE GLYCOL 3350
     Indication: Product used for unknown indication
     Dosage: UNK, PRN
     Route: 065
  15. Olive leaf [Concomitant]
     Indication: Product used for unknown indication
     Dosage: UNK
     Route: 065
  16. VITAMIN D3 [Concomitant]
     Active Substance: CHOLECALCIFEROL
     Indication: Product used for unknown indication
     Dosage: UNK
     Route: 065
  17. FLUOXETINE [Concomitant]
     Active Substance: FLUOXETINE HYDROCHLORIDE
     Indication: Product used for unknown indication

REACTIONS (2)
  - Fatigue [Recovering/Resolving]
  - Peripheral swelling [Recovering/Resolving]

NARRATIVE: CASE EVENT DATE: 20250915
